FAERS Safety Report 8309233-5 (Version None)
Quarter: 2012Q2

REPORT INFORMATION
  Report Type: 
  Country: None (occurrence: None)
  Receive Date: 20120424
  Receipt Date: 20120419
  Transmission Date: 20120825
  Serious: Yes (Hospitalization, Other)
  Sender: FDA-Public Use
  Company Number: US-MERCK-1112USA00010

PATIENT
  Age: 58 Year
  Sex: Female
  Weight: 59 kg

DRUGS (9)
  1. FOSAMAX [Suspect]
     Indication: OSTEOPOROSIS
     Route: 048
     Dates: start: 19980101, end: 20080501
  2. FOSAMAX [Suspect]
     Route: 048
     Dates: start: 20020801, end: 20030901
  3. ALENDRONATE SODIUM [Suspect]
     Indication: OSTEOPOROSIS
     Route: 048
     Dates: start: 20080701, end: 20081001
  4. MULTI-VITAMINS [Concomitant]
     Route: 065
     Dates: start: 19990101
  5. BONIVA [Suspect]
     Indication: OSTEOPOROSIS
     Route: 048
     Dates: start: 20090101, end: 20100101
  6. ALENDRONATE SODIUM [Suspect]
     Indication: OSTEOPENIA
     Route: 048
     Dates: start: 20080701, end: 20081001
  7. FOSAMAX [Suspect]
     Route: 048
     Dates: start: 20020801, end: 20030901
  8. BONIVA [Suspect]
     Indication: OSTEOPENIA
     Route: 048
     Dates: start: 20090101, end: 20100101
  9. FOSAMAX [Suspect]
     Indication: OSTEOPENIA
     Route: 048
     Dates: start: 19980101, end: 20080501

REACTIONS (36)
  - DRY MOUTH [None]
  - ARTHROPATHY [None]
  - TOOTH SOCKET HAEMORRHAGE [None]
  - TOOTH DISCOLOURATION [None]
  - SLEEP DISORDER [None]
  - BLOOD PARATHYROID HORMONE DECREASED [None]
  - BONE LOSS [None]
  - HYPERTENSION [None]
  - HYPERCALCAEMIA [None]
  - HIATUS HERNIA [None]
  - GINGIVAL BLEEDING [None]
  - TRAUMATIC OCCLUSION [None]
  - NEPHROSCLEROSIS [None]
  - LOW TURNOVER OSTEOPATHY [None]
  - DENTAL PLAQUE [None]
  - AFFECTIVE DISORDER [None]
  - EXOSTOSIS [None]
  - RENAL FAILURE CHRONIC [None]
  - ARTHRALGIA [None]
  - LOOSE TOOTH [None]
  - CARPAL TUNNEL SYNDROME [None]
  - FRACTURE NONUNION [None]
  - HAEMORRHOIDS [None]
  - TOOTH DEPOSIT [None]
  - DENTAL CARIES [None]
  - DIVERTICULUM [None]
  - HYPERCHOLESTEROLAEMIA [None]
  - FALL [None]
  - FEMUR FRACTURE [None]
  - UTERINE DISORDER [None]
  - UTERINE LEIOMYOMA [None]
  - HYPOTHYROIDISM [None]
  - TOOTH DISORDER [None]
  - SPONDYLITIS [None]
  - HYPERTONIC BLADDER [None]
  - BREAST DISORDER [None]
